FAERS Safety Report 10240597 (Version 1)
Quarter: 2014Q2

REPORT INFORMATION
  Report Type: Spontaneous
  Country: US (occurrence: None)
  Receive Date: 20140613
  Receipt Date: 20140613
  Transmission Date: 20141212
  Serious: Yes (Life-Threatening, Hospitalization, Disabling)
  Sender: FDA-Public Use
  Company Number: None

PATIENT
  Age: 40 Year
  Sex: Male
  Weight: 73.48 kg

DRUGS (1)
  1. HYDROCHLOROTHIAZIDE 25 IVAX [Suspect]
     Indication: CEREBROVASCULAR ACCIDENT
     Dosage: 1/1/2  ONCE DAILY TAKEN BY MOUTH
     Route: 048
     Dates: start: 20050503, end: 20140611

REACTIONS (3)
  - Heart rate decreased [None]
  - Blood pressure increased [None]
  - Atrial fibrillation [None]
